FAERS Safety Report 18766067 (Version 13)
Quarter: 2023Q4

REPORT INFORMATION
  Report Type: Other
  Country: BR (occurrence: BR)
  Receive Date: 20210121
  Receipt Date: 20231031
  Transmission Date: 20240110
  Serious: Yes (Life-Threatening, Other)
  Sender: FDA-Public Use
  Company Number: BR-002147023-PHHY2019BR195222

PATIENT
  Age: 63 Year
  Sex: Female

DRUGS (13)
  1. XOLAIR [Suspect]
     Active Substance: OMALIZUMAB
     Indication: Asthma
     Dosage: 4 AMPOULES
     Route: 065
     Dates: start: 20190410
  2. XOLAIR [Suspect]
     Active Substance: OMALIZUMAB
     Dosage: (STARTED 1 YEAR AND 8 MONTHS AGO)
     Route: 065
  3. XOLAIR [Suspect]
     Active Substance: OMALIZUMAB
     Dosage: (STARTED 1 YEAR AND 8 MONTHS AGO)
     Route: 065
     Dates: end: 20201217
  4. XOLAIR [Suspect]
     Active Substance: OMALIZUMAB
     Route: 058
     Dates: start: 2019
  5. XOLAIR [Suspect]
     Active Substance: OMALIZUMAB
     Route: 065
     Dates: start: 20221007
  6. XOLAIR [Suspect]
     Active Substance: OMALIZUMAB
     Route: 065
     Dates: start: 202109
  7. GLYCOPYRROLATE [Suspect]
     Active Substance: GLYCOPYRROLATE
     Indication: Asthma
     Dosage: 1 PUFF, AT 3 PM (5 YEARS AGO)
     Route: 065
  8. GLYCOPYRROLATE [Suspect]
     Active Substance: GLYCOPYRROLATE
     Dosage: 6 YEARS AGO)
     Route: 055
  9. XOLAIR [Suspect]
     Active Substance: OMALIZUMAB
     Indication: Asthma
     Dosage: UNK (2 APPLICATIONS OF THE FILLED SYRINGE AT THE BEGINNING OF THE YEAR)
     Route: 065
     Dates: start: 2021
  10. BAMIFYLLINE HYDROCHLORIDE [Concomitant]
     Active Substance: BAMIFYLLINE HYDROCHLORIDE
  11. MONTELUKAST SODIUM [Concomitant]
     Active Substance: MONTELUKAST SODIUM
  12. BECLOMETHASONE\FORMOTEROL [Concomitant]
     Active Substance: BECLOMETHASONE\FORMOTEROL
  13. MONTELUKAST SODIUM [Concomitant]
     Active Substance: MONTELUKAST SODIUM

REACTIONS (24)
  - Dyspnoea [Recovered/Resolved]
  - Near death experience [Unknown]
  - Malaise [Unknown]
  - Near death experience [Unknown]
  - Gait disturbance [Unknown]
  - Feeling abnormal [Recovered/Resolved]
  - Asthma [Unknown]
  - Intestinal haemorrhage [Recovered/Resolved]
  - Ill-defined disorder [Recovered/Resolved]
  - Intestinal polyp [Recovered/Resolved]
  - Asthmatic crisis [Not Recovered/Not Resolved]
  - Hypersensitivity [Not Recovered/Not Resolved]
  - Condition aggravated [Unknown]
  - Bronchitis [Unknown]
  - Total lung capacity decreased [Unknown]
  - Fear [Unknown]
  - Gait disturbance [Recovered/Resolved]
  - Fatigue [Unknown]
  - Dyspnoea [Recovered/Resolved]
  - Dyspnoea [Not Recovered/Not Resolved]
  - Panic disorder [Not Recovered/Not Resolved]
  - Nasopharyngitis [Not Recovered/Not Resolved]
  - Chills [Not Recovered/Not Resolved]
  - Drug ineffective [Unknown]

NARRATIVE: CASE EVENT DATE: 20190101
